FAERS Safety Report 16468542 (Version 1)
Quarter: 2019Q2

REPORT INFORMATION
  Report Type: Spontaneous
  Country: DK (occurrence: DK)
  Receive Date: 20190624
  Receipt Date: 20190624
  Transmission Date: 20190711
  Serious: Yes (Disabling)
  Sender: FDA-Public Use
  Company Number: DK-ACCORD-036545

PATIENT
  Age: 68 Year
  Sex: Male

DRUGS (2)
  1. CISPLATIN ACCORD [Suspect]
     Active Substance: CISPLATIN
     Indication: NEOPLASM MALIGNANT
     Dosage: 1 MG/ML, STRENGTH: 1 MG / ML
     Dates: start: 2014
  2. NIMORAZOLE [Concomitant]
     Active Substance: NIMORAZOLE
     Indication: PRODUCT USED FOR UNKNOWN INDICATION
     Dosage: STRENGTH: UNKNOWN
     Dates: start: 2014

REACTIONS (4)
  - Eating disorder [Unknown]
  - Weight decreased [Unknown]
  - Hypoacusis [Not Recovered/Not Resolved]
  - Hearing aid user [Not Recovered/Not Resolved]

NARRATIVE: CASE EVENT DATE: 20151203
